FAERS Safety Report 5261133-3 (Version None)
Quarter: 2007Q1

REPORT INFORMATION
  Report Type: 
  Country: None (occurrence: None)
  Receive Date: 20070309
  Receipt Date: 20070307
  Transmission Date: 20070707
  Serious: Yes (Hospitalization)
  Sender: FDA-Public Use
  Company Number: DE-BOEHRINGER INGELHEIM PHARMACEUTICALS, INC.-2007-DE-01378DE

PATIENT
  Sex: Male

DRUGS (1)
  1. ALNA OCAS [Suspect]

REACTIONS (2)
  - DIZZINESS [None]
  - DYSPNOEA [None]
